FAERS Safety Report 7608760-3 (Version None)
Quarter: 2011Q3

REPORT INFORMATION
  Report Type: 
  Country: None (occurrence: None)
  Receive Date: 20110714
  Receipt Date: 20110714
  Transmission Date: 20111222
  Serious: Yes (Disabling, Other)
  Sender: FDA-Public Use
  Company Number: None

PATIENT
  Age: 34 Year
  Sex: Male
  Weight: 119.29 kg

DRUGS (2)
  1. AMLODIPINE BESYLATE [Concomitant]
     Dosage: 1DOSE 30 AMOUNT
     Route: 048
     Dates: start: 20110426, end: 20110822
  2. AMLODIPINE BESYLATE [Suspect]
     Indication: HYPERTENSION
     Dosage: 1DOSE 30 AMOUNT
     Route: 048
     Dates: start: 20110211, end: 20110412

REACTIONS (6)
  - SOMNOLENCE [None]
  - LIBIDO DISORDER [None]
  - EMOTIONAL DISORDER [None]
  - BODY HEIGHT DECREASED [None]
  - ERECTILE DYSFUNCTION [None]
  - CHROMATURIA [None]
